FAERS Safety Report 19086859 (Version 1)
Quarter: 2021Q2

REPORT INFORMATION
  Report Type: Spontaneous
  Country: US (occurrence: US)
  Receive Date: 20210401
  Receipt Date: 20210401
  Transmission Date: 20210717
  Serious: Yes (Life-Threatening, Hospitalization)
  Sender: FDA-Public Use
  Company Number: None

PATIENT
  Age: 52 Year
  Sex: Male
  Weight: 52.62 kg

DRUGS (1)
  1. APIXABAN (APIXABAN 5MG TAB,UD) [Suspect]
     Active Substance: APIXABAN
     Indication: PULMONARY EMBOLISM
     Route: 048
     Dates: start: 20200716, end: 20200727

REACTIONS (5)
  - Gastric haemorrhage [None]
  - Haemoglobin decreased [None]
  - Unresponsive to stimuli [None]
  - Haematocrit decreased [None]
  - Gastrointestinal haemorrhage [None]

NARRATIVE: CASE EVENT DATE: 20200728
